FAERS Safety Report 9675589 (Version 1)
Quarter: 2013Q4

REPORT INFORMATION
  Report Type: Spontaneous
  Country: BR (occurrence: BR)
  Receive Date: 20131107
  Receipt Date: 20131107
  Transmission Date: 20140711
  Serious: Yes (Disabling, Other)
  Sender: FDA-Public Use
  Company Number: BR-PFIZER INC-2013314636

PATIENT
  Sex: Male

DRUGS (1)
  1. MINIDIAB [Suspect]
     Dosage: 3 TABLETS (15 MG), DAILY
     Route: 048

REACTIONS (2)
  - Cerebrovascular accident [Recovered/Resolved with Sequelae]
  - Walking aid user [Not Recovered/Not Resolved]
